FAERS Safety Report 8256949-5 (Version None)
Quarter: 2012Q2

REPORT INFORMATION
  Report Type: 
  Country: None (occurrence: None)
  Receive Date: 20120403
  Receipt Date: 20120326
  Transmission Date: 20120825
  Serious: Yes (Other)
  Sender: FDA-Public Use
  Company Number: FR-JNJFOC-20120314180

PATIENT
  Age: 71 Year
  Sex: Female

DRUGS (15)
  1. REMICADE [Suspect]
     Indication: PSORIATIC ARTHROPATHY
     Route: 042
     Dates: start: 20120112, end: 20120112
  2. METHOTREXATE SODIUM [Concomitant]
     Route: 058
  3. RYTHMOL [Concomitant]
     Route: 048
  4. CANDESARTAN CILEXETIL AND HYDROCHLOROTHIAZIDE [Concomitant]
     Indication: HYPERTENSION
     Dosage: 16/12.5MG
     Route: 048
  5. REMICADE [Suspect]
     Indication: RHEUMATOID ARTHRITIS
     Route: 042
     Dates: start: 20120112, end: 20120112
  6. NEXIUM [Concomitant]
     Route: 048
  7. ACETAMINOPHEN AND TRAMADOL HCL [Concomitant]
     Route: 048
  8. ACETAMINOPHEN [Concomitant]
     Route: 065
  9. ASPIRIN [Concomitant]
     Route: 048
  10. FOLIC ACID [Concomitant]
     Route: 048
  11. REMICADE [Suspect]
     Route: 042
     Dates: start: 20100901
  12. FLECAINIDE ACETATE [Concomitant]
     Indication: ATRIAL FIBRILLATION
     Route: 048
  13. ACETAMINOPHEN AND CODEINE PHOSPHATE [Concomitant]
     Route: 048
  14. REMICADE [Suspect]
     Route: 042
     Dates: start: 20100901
  15. LEVOTHYROXINE SODIUM [Concomitant]
     Indication: HYPOTHYROIDISM
     Dosage: 100MCG
     Route: 048

REACTIONS (3)
  - INFUSION RELATED REACTION [None]
  - ODYNOPHAGIA [None]
  - PYREXIA [None]
